FAERS Safety Report 18452989 (Version 10)
Quarter: 2024Q3

REPORT INFORMATION
  Report Type: Spontaneous
  Country: IN (occurrence: IN)
  Receive Date: 20201102
  Receipt Date: 20240920
  Transmission Date: 20241017
  Serious: Yes (Hospitalization, Other)
  Sender: PFIZER
  Company Number: IN-PFIZER INC-2020248921

PATIENT
  Age: 78 Year
  Sex: Female

DRUGS (9)
  1. PALBOCICLIB [Suspect]
     Active Substance: PALBOCICLIB
     Indication: Breast cancer metastatic
     Dosage: 125 MG ONCE A DAY (FOR 21DAYS)
     Route: 048
     Dates: start: 20191212
  2. PALBOCICLIB [Suspect]
     Active Substance: PALBOCICLIB
     Dosage: 125 MG, CYCLIC (DAILY FOR THREE WEEKS THEN 1 WEEK OFF)
     Dates: start: 20210208
  3. PALBOCICLIB [Suspect]
     Active Substance: PALBOCICLIB
     Dosage: 125 MG, OD
     Route: 048
     Dates: end: 202207
  4. FULVESTRANT [Concomitant]
     Active Substance: FULVESTRANT
     Dosage: 500 MG, MONTHLY (ONCE IN A MONTH X 3 MONTHS)
     Route: 030
     Dates: start: 2021
  5. APIGAT [Concomitant]
     Dosage: UNK
  6. CYANOCOBALAMIN\FOLIC ACID\PYRIDOXINE HYDROCHLORIDE [Concomitant]
     Active Substance: CYANOCOBALAMIN\FOLIC ACID\PYRIDOXINE HYDROCHLORIDE
     Dosage: UNK
  7. RIOCIGUAT [Concomitant]
     Active Substance: RIOCIGUAT
     Dosage: UNK
  8. BUDESONIDE\FORMOTEROL FUMARATE [Concomitant]
     Active Substance: BUDESONIDE\FORMOTEROL FUMARATE
     Dosage: UNK
  9. FLUTICONE FT [FLUTICASONE FUROATE] [Concomitant]
     Dosage: UNK

REACTIONS (14)
  - Spinal fracture [Unknown]
  - Thrombosis [Unknown]
  - White blood cell count decreased [Unknown]
  - Platelet count decreased [Unknown]
  - Pulmonary embolism [Unknown]
  - Dyspnoea [Unknown]
  - Back pain [Unknown]
  - Upper respiratory tract infection [Unknown]
  - Lacrimation increased [Unknown]
  - Throat irritation [Unknown]
  - Lung opacity [Unknown]
  - Respiratory disorder [Unknown]
  - Oxygen saturation decreased [Unknown]
  - Infection [Unknown]

NARRATIVE: CASE EVENT DATE: 20200401
